FAERS Safety Report 20001058 (Version 1)
Quarter: 2021Q4

REPORT INFORMATION
  Report Type: Spontaneous
  Country: US (occurrence: US)
  Receive Date: 20211027
  Receipt Date: 20211027
  Transmission Date: 20220303
  Serious: No
  Sender: FDA-Public Use
  Company Number: US-BAYER-2021A237558

PATIENT
  Age: 80 Year
  Sex: Female

DRUGS (2)
  1. MIRALAX [Suspect]
     Active Substance: POLYETHYLENE GLYCOL 3350
     Indication: Colonoscopy
     Dosage: 64 OUNCES OF LIQUID WITH 8.3 OUNCES OF MIRALAX
     Route: 048
  2. DULCOLAX (BISACODYL) [Suspect]
     Active Substance: BISACODYL
     Dosage: 4 DF

REACTIONS (2)
  - Drug ineffective [Unknown]
  - Off label use [Unknown]

NARRATIVE: CASE EVENT DATE: 20210913
